FAERS Safety Report 25024143 (Version 1)
Quarter: 2025Q1

REPORT INFORMATION
  Report Type: Spontaneous
  Country: US (occurrence: US)
  Receive Date: 20250228
  Receipt Date: 20250228
  Transmission Date: 20250408
  Serious: No
  Sender: AUROBINDO
  Company Number: US-AUROBINDO-AUR-APL-2024-024363

PATIENT
  Age: 76 Year
  Sex: Female
  Weight: 79.3 kg

DRUGS (1)
  1. DOFETILIDE [Suspect]
     Active Substance: DOFETILIDE
     Indication: Atrial fibrillation
     Route: 065

REACTIONS (2)
  - Urinary tract infection [Unknown]
  - Cystitis [Unknown]
